FAERS Safety Report 6461074-X (Version None)
Quarter: 2009Q4

REPORT INFORMATION
  Report Type: 
  Country: None (occurrence: None)
  Receive Date: 20091130
  Receipt Date: 20091119
  Transmission Date: 20100525
  Serious: Yes (Hospitalization)
  Sender: FDA-Public Use
  Company Number: B0606201A

PATIENT
  Sex: Female

DRUGS (9)
  1. AUGMENTIN [Suspect]
     Indication: PNEUMONIA
     Route: 065
     Dates: start: 20080509, end: 20080514
  2. SINTROM [Suspect]
     Dosage: 4MG UNKNOWN
     Route: 048
     Dates: end: 20080516
  3. TAVANIC [Suspect]
     Indication: PNEUMONIA
     Dosage: 500MG ALTERNATE DAYS
     Route: 048
     Dates: start: 20090514, end: 20090529
  4. PRAVASTATIN [Concomitant]
     Indication: DRUG USE FOR UNKNOWN INDICATION
     Route: 065
  5. LEVOTHYROXINE SODIUM [Concomitant]
     Indication: DRUG USE FOR UNKNOWN INDICATION
     Route: 065
  6. NEXIUM [Concomitant]
     Indication: DRUG USE FOR UNKNOWN INDICATION
     Route: 065
  7. MOTILIUM [Concomitant]
     Indication: DRUG USE FOR UNKNOWN INDICATION
     Route: 065
  8. RENAGEL [Concomitant]
     Indication: DRUG USE FOR UNKNOWN INDICATION
     Route: 065
  9. NEORECORMON [Concomitant]
     Indication: DRUG USE FOR UNKNOWN INDICATION
     Route: 065

REACTIONS (5)
  - ANAEMIA [None]
  - ARTERIOVENOUS FISTULA SITE HAEMORRHAGE [None]
  - DRUG INTERACTION [None]
  - INTERNATIONAL NORMALISED RATIO INCREASED [None]
  - OVERDOSE [None]
